FAERS Safety Report 13186942 (Version 5)
Quarter: 2018Q2

REPORT INFORMATION
  Report Type: Report from Study
  Country: IL (occurrence: IL)
  Receive Date: 20170206
  Receipt Date: 20180508
  Transmission Date: 20180711
  Serious: Yes (Hospitalization)
  Sender: FDA-Public Use
  Company Number: IL-ROCHE-1887672

PATIENT
  Age: 71 Year
  Sex: Male
  Weight: 72 kg

DRUGS (24)
  1. LOSEC [Concomitant]
     Active Substance: OMEPRAZOLE
     Indication: PEPTIC ULCER
     Route: 065
     Dates: start: 20160719
  2. GRANISETRON [Concomitant]
     Active Substance: GRANISETRON
     Indication: PREMEDICATION
     Route: 065
     Dates: start: 20170118, end: 20170118
  3. OXYCODONE [Concomitant]
     Active Substance: OXYCODONE
     Indication: BACK PAIN
     Route: 065
     Dates: start: 20120317
  4. VENLAFAXINE [Concomitant]
     Active Substance: VENLAFAXINE HYDROCHLORIDE
     Indication: DEPRESSION
     Route: 065
     Dates: start: 200305
  5. SODIUM CHLORIDE. [Concomitant]
     Active Substance: SODIUM CHLORIDE
     Indication: VOMITING
     Route: 065
     Dates: start: 20170616
  6. AVILAC [Concomitant]
     Indication: CONSTIPATION
     Route: 065
     Dates: start: 201308, end: 20170109
  7. POTASSIUM CHLORIDE. [Concomitant]
     Active Substance: POTASSIUM CHLORIDE
     Indication: VOMITING
     Route: 065
     Dates: start: 20170616
  8. NAB-PACLITAXEL [Suspect]
     Active Substance: PACLITAXEL
     Indication: NON-SMALL CELL LUNG CANCER STAGE IV
     Dosage: (STANDARD DOSING PER PROTOCOL)?MOST RECENT DOSE PRIOR TO AE ONSET: 18/JAN/2017 AT 12:25 HOURS (145 M
     Route: 042
     Dates: start: 20160824
  9. CARBOPLATIN. [Suspect]
     Active Substance: CARBOPLATIN
     Indication: NON-SMALL CELL LUNG CANCER STAGE IV
     Dosage: THE CONCENTRATION-TIME CURVE (AUC) OF 6 MG/ML/MIN (STANDARD DOSING PER PROTOCOL)?MOST RECENT DOSE PR
     Route: 042
     Dates: start: 20160824
  10. PRAMIN (ISRAEL) [Concomitant]
     Active Substance: IMIPRAMINE
  11. ZOFRAN [Concomitant]
     Active Substance: ONDANSETRON HYDROCHLORIDE
     Indication: PREMEDICATION
     Route: 065
     Dates: start: 20161228, end: 20161228
  12. ZOFRAN [Concomitant]
     Active Substance: ONDANSETRON HYDROCHLORIDE
     Route: 065
     Dates: start: 20170104, end: 20170104
  13. FERRO GRADUMET [Concomitant]
     Active Substance: FERROUS SULFATE
     Indication: PROPHYLAXIS
     Route: 065
     Dates: start: 20170125
  14. PECFENT [Concomitant]
     Active Substance: FENTANYL CITRATE
     Indication: ABDOMINAL PAIN
  15. ATEZOLIZUMAB. [Suspect]
     Active Substance: ATEZOLIZUMAB
     Indication: NON-SMALL CELL LUNG CANCER STAGE IV
     Dosage: MOST RECENT DOSE PRIOR TO AE ONSET: 18/JAN/2017 AT 1140 HOURS
     Route: 042
     Dates: start: 20160824
  16. HYPNODORM [Concomitant]
     Indication: SLEEP APNOEA SYNDROME
     Route: 065
     Dates: start: 20160724
  17. PERCOCET [Concomitant]
     Active Substance: ACETAMINOPHEN\OXYCODONE HYDROCHLORIDE
     Indication: BACK PAIN
     Route: 065
     Dates: start: 20160824
  18. PAPAVERIN [Concomitant]
     Indication: ABDOMINAL PAIN
     Route: 065
     Dates: start: 20170221
  19. PECFENT [Concomitant]
     Active Substance: FENTANYL CITRATE
     Indication: BACK PAIN
     Route: 065
     Dates: start: 20170124
  20. TAZOCIN [Concomitant]
     Active Substance: PIPERACILLIN SODIUM\TAZOBACTAM SODIUM
     Indication: BACTERAEMIA
     Route: 065
     Dates: start: 20170620, end: 20170620
  21. OMNIC [Concomitant]
     Active Substance: TAMSULOSIN HYDROCHLORIDE
     Indication: BENIGN PROSTATIC HYPERPLASIA
     Route: 065
     Dates: start: 2013
  22. OPTALGIN [Concomitant]
     Active Substance: METAMIZOLE
     Indication: BACK PAIN
     Route: 065
     Dates: start: 201603
  23. FENTA [Concomitant]
     Indication: BACK PAIN
     Route: 065
     Dates: start: 20160824
  24. CREON [Concomitant]
     Active Substance: PANCRELIPASE AMYLASE\PANCRELIPASE LIPASE\PANCRELIPASE PROTEASE
     Indication: ABDOMINAL PAIN
     Route: 065
     Dates: start: 20170315

REACTIONS (1)
  - Duodenal ulcer [Recovering/Resolving]

NARRATIVE: CASE EVENT DATE: 20170125
